FAERS Safety Report 15558466 (Version 2)
Quarter: 2018Q4

REPORT INFORMATION
  Report Type: Spontaneous
  Country: US (occurrence: US)
  Receive Date: 20181028
  Receipt Date: 20181028
  Transmission Date: 20190205
  Serious: No
  Sender: FDA-Public Use
  Company Number: US-VIFOR (INTERNATIONAL) INC.-VIT-2016-06355

PATIENT
  Age: 69 Year
  Sex: Female

DRUGS (18)
  1. VELTASSA [Suspect]
     Active Substance: PATIROMER
     Indication: HYPERKALAEMIA
     Route: 048
     Dates: start: 20160211
  2. CRANBERRY. [Concomitant]
     Active Substance: CRANBERRY
  3. PROBIOTIC [Concomitant]
     Active Substance: PROBIOTICS NOS
  4. SODIUM BICARBONATE. [Concomitant]
     Active Substance: SODIUM BICARBONATE
  5. VITAMIN B12 [Concomitant]
     Active Substance: CYANOCOBALAMIN
  6. DEXAMETHASONE. [Concomitant]
     Active Substance: DEXAMETHASONE
  7. LEXAPRO [Concomitant]
     Active Substance: ESCITALOPRAM OXALATE
  8. RITUXAN [Concomitant]
     Active Substance: RITUXIMAB
  9. PROCRIT [Concomitant]
     Active Substance: ERYTHROPOIETIN
  10. IRON [Concomitant]
     Active Substance: IRON
  11. LIPITOR [Concomitant]
     Active Substance: ATORVASTATIN CALCIUM
  12. LISINOPRIL. [Concomitant]
     Active Substance: LISINOPRIL
  13. ASPIRIN. [Concomitant]
     Active Substance: ASPIRIN
  14. CEPHALEXIN. [Concomitant]
     Active Substance: CEPHALEXIN
  15. VIACTIV [Concomitant]
     Active Substance: CALCIUM\VITAMIN D\VITAMIN K5
  16. VITAMIN D [Concomitant]
     Active Substance: CHOLECALCIFEROL
  17. LEVOXYL [Concomitant]
     Active Substance: LEVOTHYROXINE SODIUM
  18. VELCADE [Concomitant]
     Active Substance: BORTEZOMIB

REACTIONS (4)
  - Diarrhoea [Unknown]
  - Product dose omission [Unknown]
  - Nausea [Unknown]
  - Anaemia [Unknown]

NARRATIVE: CASE EVENT DATE: 201609
